FAERS Safety Report 23366488 (Version 1)
Quarter: 2024Q1

REPORT INFORMATION
  Report Type: Spontaneous
  Country: US (occurrence: US)
  Receive Date: 20240104
  Receipt Date: 20240104
  Transmission Date: 20240410
  Serious: No
  Sender: FDA-Public Use
  Company Number: US-PFIZER INC-202300452927

PATIENT
  Age: 51 Year
  Sex: Female
  Weight: 51.26 kg

DRUGS (1)
  1. ZAVZPRET [Suspect]
     Active Substance: ZAVEGEPANT HYDROCHLORIDE
     Indication: Migraine
     Dosage: 10 MG (USED IT AT ONSET OF WHATEVER IF FEEL LIKE TRYING TO GET RID OF HEAD PAIN TODAY)
     Route: 045
     Dates: start: 20231114, end: 202312

REACTIONS (1)
  - Trigeminal neuralgia [Recovered/Resolved]

NARRATIVE: CASE EVENT DATE: 20231114
